FAERS Safety Report 4876882-6 (Version None)
Quarter: 2006Q1

REPORT INFORMATION
  Report Type: 
  Country: None (occurrence: None)
  Receive Date: 20060109
  Receipt Date: 20060109
  Transmission Date: 20060701
  Serious: Yes (Other)
  Sender: FDA-Public Use
  Company Number: None

PATIENT
  Age: 27 Year
  Sex: Female
  Weight: 63.5036 kg

DRUGS (2)
  1. SKELAXIN [Suspect]
     Indication: MUSCLE STRAIN
     Dosage: 800 MG  1 AT NIGHT PO
     Route: 048
     Dates: start: 20060104, end: 20060106
  2. NAPROXEN [Concomitant]

REACTIONS (3)
  - CHEST DISCOMFORT [None]
  - DYSPNOEA [None]
  - PRURITUS [None]
